FAERS Safety Report 20544103 (Version 1)
Quarter: 2022Q1

REPORT INFORMATION
  Report Type: Spontaneous
  Country: US (occurrence: None)
  Receive Date: 20220303
  Receipt Date: 20220303
  Transmission Date: 20220424
  Serious: No
  Sender: FDA-Public Use
  Company Number: US-Accord-237393

PATIENT
  Age: 59 Year
  Sex: Female

DRUGS (1)
  1. SUCCINYLCHOLINE CHLORIDE [Suspect]
     Active Substance: SUCCINYLCHOLINE CHLORIDE
     Indication: Electroconvulsive therapy
     Dosage: STRENGTH: 60MG, ONE DOSE
     Route: 042
     Dates: start: 20210824

REACTIONS (1)
  - Drug ineffective [Unknown]
